FAERS Safety Report 11145985 (Version 1)
Quarter: 2015Q2

REPORT INFORMATION
  Report Type: Spontaneous
  Country: US (occurrence: US)
  Receive Date: 20150528
  Receipt Date: 20150528
  Transmission Date: 20150821
  Serious: Yes (Hospitalization)
  Sender: FDA-Public Use
  Company Number: US-GLAXOSMITHKLINE-US2015GSK071639

PATIENT
  Sex: Female

DRUGS (7)
  1. KLONOPIN [Suspect]
     Active Substance: CLONAZEPAM
     Indication: PRODUCT USED FOR UNKNOWN INDICATION
     Dosage: UNK
     Route: 065
  2. REMERON [Suspect]
     Active Substance: MIRTAZAPINE
     Indication: PRODUCT USED FOR UNKNOWN INDICATION
     Dosage: UNK
     Route: 065
  3. TOPICAL SKIN PREPARATION [Suspect]
     Active Substance: UNSPECIFIED INGREDIENT
     Indication: PRODUCT USED FOR UNKNOWN INDICATION
     Dosage: UNK
     Route: 061
  4. ALLI [Suspect]
     Active Substance: ORLISTAT
     Indication: PRODUCT USED FOR UNKNOWN INDICATION
     Dosage: UNK
     Route: 048
  5. ACNE MEDICATION [Suspect]
     Active Substance: UNSPECIFIED INGREDIENT
     Indication: PRODUCT USED FOR UNKNOWN INDICATION
     Dosage: UNK
     Route: 065
  6. DEPAKOTE [Suspect]
     Active Substance: DIVALPROEX SODIUM
     Indication: PRODUCT USED FOR UNKNOWN INDICATION
     Dosage: UNK
     Route: 065
  7. SEROQUEL [Suspect]
     Active Substance: QUETIAPINE FUMARATE
     Indication: PRODUCT USED FOR UNKNOWN INDICATION
     Dosage: UNK
     Route: 048

REACTIONS (23)
  - Insomnia [Unknown]
  - Hypoaesthesia [Unknown]
  - Coordination abnormal [Unknown]
  - Dyskinesia [Unknown]
  - Anosmia [Unknown]
  - Atrophy [Unknown]
  - Hallucination [Unknown]
  - Faeces pale [Unknown]
  - Fall [Unknown]
  - Headache [Unknown]
  - Furuncle [Unknown]
  - Limb deformity [Unknown]
  - Skin atrophy [Unknown]
  - Mental disorder [Unknown]
  - Dyspnoea [Unknown]
  - Foot deformity [Unknown]
  - Gait disturbance [Unknown]
  - Nasal congestion [Unknown]
  - Feeling abnormal [Unknown]
  - Malaise [Unknown]
  - Muscle atrophy [Unknown]
  - Muscle disorder [Unknown]
  - Impaired healing [Unknown]
